FAERS Safety Report 9339340 (Version 4)
Quarter: 2013Q3

REPORT INFORMATION
  Report Type: Report from Study
  Country: ES (occurrence: ES)
  Receive Date: 20130610
  Receipt Date: 20130905
  Transmission Date: 20140515
  Serious: Yes (Other)
  Sender: FDA-Public Use
  Company Number: ES-TEVA-411148USA

PATIENT
  Age: 59 Year
  Sex: Male
  Weight: 77.2 kg

DRUGS (10)
  1. BENDAMUSTINE HCL [Suspect]
     Indication: CHRONIC LYMPHOCYTIC LEUKAEMIA
     Dosage: UID/QD
     Route: 042
     Dates: start: 20130228, end: 20130228
  2. BENDAMUSTINE HCL [Suspect]
     Dosage: UID/QD
     Route: 042
     Dates: start: 20130301, end: 20130301
  3. BENDAMUSTINE HCL [Suspect]
     Dosage: UID/QD
     Route: 042
     Dates: start: 20130326, end: 20130326
  4. BENDAMUSTINE HCL [Suspect]
     Dosage: UID/QD
     Route: 042
     Dates: start: 20130327, end: 20130327
  5. BENDAMUSTINE HCL [Suspect]
     Dosage: UID/QD
     Route: 042
     Dates: start: 20130425, end: 20130425
  6. ACICLOVIR [Concomitant]
     Dates: start: 20130228
  7. SEPTRIN [Concomitant]
     Dates: start: 20130128
  8. ITRACONAZOL [Concomitant]
     Dates: start: 20130228
  9. ALLOPURINOL [Concomitant]
     Dates: start: 20130218
  10. HIDROALTESONA [Concomitant]
     Dates: start: 20130307

REACTIONS (1)
  - Aplasia pure red cell [Recovered/Resolved]
